FAERS Safety Report 6907074-4 (Version None)
Quarter: 2010Q3

REPORT INFORMATION
  Report Type: 
  Country: None (occurrence: None)
  Receive Date: 20100804
  Receipt Date: 20081110
  Transmission Date: 20110219
  Serious: No
  Sender: FDA-Public Use
  Company Number: US-PFIZER INC-2004084116

PATIENT
  Sex: Female

DRUGS (1)
  1. NARDIL [Suspect]

REACTIONS (6)
  - BLOOD PRESSURE INCREASED [None]
  - FEELING HOT [None]
  - FLUSHING [None]
  - INSOMNIA [None]
  - PARAESTHESIA [None]
  - SENSORY DISTURBANCE [None]
